FAERS Safety Report 4937199-4 (Version None)
Quarter: 2006Q1

REPORT INFORMATION
  Report Type: 
  Country: None (occurrence: None)
  Receive Date: 20060307
  Receipt Date: 20060307
  Transmission Date: 20060701
  Serious: Yes (Hospitalization)
  Sender: FDA-Public Use
  Company Number: None

PATIENT
  Age: 79 Year
  Sex: Male
  Weight: 97.2 kg

DRUGS (2)
  1. BUMETANIDE [Suspect]
     Indication: CARDIAC FAILURE CONGESTIVE
     Dosage: 2MG  QD  PO
     Route: 048
  2. BUMETANIDE [Suspect]
     Indication: HYPERTENSION
     Dosage: 2MG  QD  PO
     Route: 048

REACTIONS (9)
  - ANAEMIA [None]
  - ANION GAP INCREASED [None]
  - BLOOD CHLORIDE DECREASED [None]
  - BLOOD SODIUM DECREASED [None]
  - CONDITION AGGRAVATED [None]
  - DIABETES MELLITUS INADEQUATE CONTROL [None]
  - HYPOKALAEMIA [None]
  - HYPOTENSION [None]
  - RENAL IMPAIRMENT [None]
